FAERS Safety Report 23143829 (Version 1)
Quarter: 2023Q4

REPORT INFORMATION
  Report Type: Report from Study
  Country: JP (occurrence: JP)
  Receive Date: 20231103
  Receipt Date: 20231103
  Transmission Date: 20240110
  Serious: Yes (Life-Threatening, Hospitalization, Other)
  Sender: FDA-Public Use
  Company Number: JP-PFIZER INC-PV202300180294

PATIENT
  Age: 72 Year
  Sex: Male
  Weight: 55.6 kg

DRUGS (2)
  1. VANCOMYCIN [Suspect]
     Active Substance: VANCOMYCIN
     Dosage: UNK
  2. DORIPENEM [Suspect]
     Active Substance: DORIPENEM
     Dosage: UNK

REACTIONS (2)
  - Toxic epidermal necrolysis [Unknown]
  - Multiple organ dysfunction syndrome [Unknown]
